FAERS Safety Report 15438361 (Version 1)
Quarter: 2018Q3

REPORT INFORMATION
  Report Type: Spontaneous
  Country: IT (occurrence: IT)
  Receive Date: 20180928
  Receipt Date: 20180928
  Transmission Date: 20181010
  Serious: Yes (Hospitalization)
  Sender: FDA-Public Use
  Company Number: IT-ABBVIE-18K-083-2499696-00

PATIENT
  Age: 62 Year
  Sex: Female

DRUGS (2)
  1. VENETOCLAX. [Suspect]
     Active Substance: VENETOCLAX
     Indication: ACUTE MYELOID LEUKAEMIA
     Route: 048
     Dates: start: 20180806, end: 20180909
  2. CYTARABINE. [Concomitant]
     Active Substance: CYTARABINE
     Indication: ACUTE MYELOID LEUKAEMIA
     Dates: start: 20180806, end: 20180909

REACTIONS (2)
  - Off label use [Recovered/Resolved]
  - Bone marrow transplant [Unknown]

NARRATIVE: CASE EVENT DATE: 20180806
